FAERS Safety Report 8180464-0 (Version None)
Quarter: 2012Q1

REPORT INFORMATION
  Report Type: 
  Country: None (occurrence: None)
  Receive Date: 20120302
  Receipt Date: 20120224
  Transmission Date: 20120608
  Serious: Yes (Hospitalization)
  Sender: FDA-Public Use
  Company Number: US-ACTELION-A-US2011-55418

PATIENT

DRUGS (3)
  1. COUMADIN [Concomitant]
  2. TRACLEER [Suspect]
     Indication: PULMONARY ARTERIAL HYPERTENSION
     Dosage: UNK
     Route: 048
     Dates: start: 20040818
  3. TYVASO [Suspect]

REACTIONS (5)
  - VOMITING [None]
  - WEIGHT DECREASED [None]
  - URINARY TRACT INFECTION [None]
  - NAUSEA [None]
  - PIGMENTATION DISORDER [None]
